FAERS Safety Report 4535659-1 (Version None)
Quarter: 2004Q4

REPORT INFORMATION
  Report Type: 
  Country: None (occurrence: None)
  Receive Date: 20041220
  Receipt Date: 20041207
  Transmission Date: 20050328
  Serious: Yes (Hospitalization, Other)
  Sender: FDA-Public Use
  Company Number: 2004106914

PATIENT
  Age: 57 Year
  Sex: Male
  Weight: 106.5953 kg

DRUGS (2)
  1. CELECOXIB(CELECOXIB) [Suspect]
     Indication: INTERVERTEBRAL DISC DISORDER
     Dosage: ORAL
     Route: 048
  2. GLIMEPIRIDE (GLIMEPERIDE) [Concomitant]

REACTIONS (5)
  - ACETABULUM FRACTURE [None]
  - DRUG EFFECT DECREASED [None]
  - FALL [None]
  - MUSCULOSKELETAL STIFFNESS [None]
  - PAIN [None]
